FAERS Safety Report 22312063 (Version 1)
Quarter: 2023Q2

REPORT INFORMATION
  Report Type: Report from Study
  Country: PL (occurrence: PL)
  Receive Date: 20230512
  Receipt Date: 20230512
  Transmission Date: 20230721
  Serious: Yes (Other)
  Sender: FDA-Public Use
  Company Number: PL-TAKEDA-2023TUS045386

PATIENT
  Age: 46 Year
  Sex: Female
  Weight: 65 kg

DRUGS (5)
  1. VEDOLIZUMAB [Suspect]
     Active Substance: VEDOLIZUMAB
     Indication: Crohn^s disease
     Dosage: 108 MILLIGRAM, Q2WEEKS
     Route: 058
     Dates: start: 20210520, end: 20230223
  2. MESALAMINE [Concomitant]
     Active Substance: MESALAMINE
     Indication: Crohn^s disease
     Dosage: 1000 MILLIGRAM, TID
     Route: 048
  3. ENZORIL [Concomitant]
     Indication: Crohn^s disease
     Dosage: 30 MILLIGRAM, QD
     Route: 048
     Dates: start: 20230309
  4. XARELTO [Concomitant]
     Active Substance: RIVAROXABAN
     Indication: Ischaemic stroke
     Dosage: 20 MILLIGRAM, QD
     Route: 048
     Dates: start: 2019
  5. METOPROLOL [Concomitant]
     Active Substance: METOPROLOL
     Indication: Ischaemic stroke
     Dosage: 25 MILLIGRAM, QD
     Route: 048
     Dates: start: 2010

REACTIONS (1)
  - Hormone receptor positive breast cancer [Not Recovered/Not Resolved]

NARRATIVE: CASE EVENT DATE: 20230301
